FAERS Safety Report 22076357 (Version 1)
Quarter: 2023Q1

REPORT INFORMATION
  Report Type: Report from Study
  Country: US (occurrence: US)
  Receive Date: 20230309
  Receipt Date: 20230309
  Transmission Date: 20230418
  Serious: Yes (Hospitalization, Other)
  Sender: FDA-Public Use
  Company Number: US-BIOVITRUM-2022-US-09853

PATIENT
  Age: 3 Year
  Sex: Male

DRUGS (2)
  1. KINERET [Suspect]
     Active Substance: ANAKINRA
     Indication: Still^s disease
     Dosage: 0.35 ML/52.24 MG
     Route: 058
     Dates: start: 20210716
  2. KINERET [Suspect]
     Active Substance: ANAKINRA
     Route: 058
     Dates: start: 20210716

REACTIONS (7)
  - Rhinovirus infection [Unknown]
  - Pneumonia [Unknown]
  - Intentional product misuse [Not Recovered/Not Resolved]
  - Serum ferritin increased [Unknown]
  - Cough [Unknown]
  - Rash erythematous [Recovered/Resolved]
  - Lung disorder [Unknown]

NARRATIVE: CASE EVENT DATE: 20210716
